FAERS Safety Report 14676193 (Version 4)
Quarter: 2018Q4

REPORT INFORMATION
  Report Type: Report from Study
  Country: US (occurrence: US)
  Receive Date: 20180323
  Receipt Date: 20181121
  Transmission Date: 20190204
  Serious: Yes (Hospitalization)
  Sender: FDA-Public Use
  Company Number: US-ACTELION-A-NJ2018-169542

PATIENT
  Age: 35 Year
  Sex: Female
  Weight: 62.13 kg

DRUGS (14)
  1. UPTRAVI [Suspect]
     Active Substance: SELEXIPAG
     Dosage: 1000 MCG, UNK
     Route: 048
     Dates: start: 20160728
  2. UPTRAVI [Suspect]
     Active Substance: SELEXIPAG
     Dosage: 200 MCG, UNK
     Route: 048
     Dates: start: 20170126
  3. SERTRALINE [Concomitant]
     Active Substance: SERTRALINE HYDROCHLORIDE
     Dosage: 25 MG, UNK
     Dates: start: 20160728
  4. MIRENA [Concomitant]
     Active Substance: LEVONORGESTREL
     Dosage: UNK
     Route: 015
     Dates: start: 20170126
  5. TOPROL XL [Concomitant]
     Active Substance: METOPROLOL SUCCINATE
     Dosage: 100 MG, UNK
     Dates: start: 20170701
  6. PROAIR HFA [Concomitant]
     Active Substance: ALBUTEROL SULFATE
  7. UPTRAVI [Suspect]
     Active Substance: SELEXIPAG
     Indication: PULMONARY ARTERIAL HYPERTENSION
     Dosage: 1000 MCG, BID
     Route: 048
  8. ALBUTEROL. [Concomitant]
     Active Substance: ALBUTEROL
     Dosage: 90 MCG, UNK
     Dates: start: 20170126
  9. REVATIO [Concomitant]
     Active Substance: SILDENAFIL CITRATE
     Dosage: UNK
     Dates: start: 20160728
  10. MULTIVITAMIN [Concomitant]
     Active Substance: VITAMINS
     Dosage: UNK
     Dates: start: 20160728
  11. TOLTERODINE [Concomitant]
     Active Substance: TOLTERODINE
     Dosage: 4 MG, UNK
     Dates: start: 20160728
  12. TOLTERODINE [Concomitant]
     Active Substance: TOLTERODINE
     Dosage: 1 MG, UNK
     Dates: start: 20170126
  13. OPSUMIT [Suspect]
     Active Substance: MACITENTAN
     Indication: PULMONARY ARTERIAL HYPERTENSION
     Dosage: 10 MG, QD
     Route: 048
     Dates: start: 20160730
  14. XARELTO [Concomitant]
     Active Substance: RIVAROXABAN

REACTIONS (5)
  - Kidney infection [Unknown]
  - Cystitis [Unknown]
  - Nephrolithiasis [Recovered/Resolved]
  - Stent placement [Unknown]
  - Pain in extremity [Not Recovered/Not Resolved]

NARRATIVE: CASE EVENT DATE: 20180305
